FAERS Safety Report 7190008-8 (Version None)
Quarter: 2010Q4

REPORT INFORMATION
  Report Type: 
  Country: None (occurrence: None)
  Receive Date: 20101223
  Receipt Date: 20101214
  Transmission Date: 20110411
  Serious: Yes (Hospitalization, Other)
  Sender: FDA-Public Use
  Company Number: US-JNJFOC-20100807777

PATIENT
  Sex: Male

DRUGS (6)
  1. LEVAQUIN [Suspect]
     Indication: SINUSITIS
     Route: 048
  2. LEVAQUIN [Suspect]
     Route: 048
  3. LEVAQUIN [Suspect]
     Indication: LUNG INFECTION
     Route: 048
  4. LEVAQUIN [Suspect]
     Route: 048
  5. AVELOX [Suspect]
     Indication: PNEUMONIA
     Route: 065
  6. AVELOX [Suspect]
     Indication: BRONCHITIS
     Route: 065

REACTIONS (4)
  - DEPRESSION [None]
  - LIGAMENT DISORDER [None]
  - PAIN IN EXTREMITY [None]
  - TENDON RUPTURE [None]
